FAERS Safety Report 13538186 (Version 4)
Quarter: 2017Q2

REPORT INFORMATION
  Report Type: Spontaneous
  Country: US (occurrence: US)
  Receive Date: 20170512
  Receipt Date: 20170629
  Transmission Date: 20170830
  Serious: Yes (Hospitalization, Disabling, Other)
  Sender: FDA-Public Use
  Company Number: US-BRISTOL-MYERS SQUIBB COMPANY-BMS-2017-039532

PATIENT
  Age: 60 Year
  Sex: Male

DRUGS (1)
  1. SPRYCEL [Suspect]
     Active Substance: DASATINIB
     Indication: CHRONIC MYELOID LEUKAEMIA
     Dosage: 20 MG, DAILY
     Route: 048
     Dates: start: 20140714

REACTIONS (4)
  - Abasia [Unknown]
  - Fatigue [Unknown]
  - Prescribed underdose [Unknown]
  - Pneumonia [Unknown]

NARRATIVE: CASE EVENT DATE: 20170328
